FAERS Safety Report 18765042 (Version 1)
Quarter: 2021Q1

REPORT INFORMATION
  Report Type: Spontaneous
  Country: US (occurrence: US)
  Receive Date: 20210120
  Receipt Date: 20210120
  Transmission Date: 20210419
  Serious: Yes (Death, Life-Threatening, Hospitalization)
  Sender: FDA-Public Use
  Company Number: US-ELI_LILLY_AND_COMPANY-US202101007103

PATIENT
  Age: 69 Year
  Sex: Female
  Weight: 58.7 kg

DRUGS (3)
  1. BAMLANIVIMAB 700MG [Suspect]
     Active Substance: BAMLANIVIMAB
     Indication: COVID-19
     Dosage: 700 MG, SINGLE
     Route: 041
     Dates: start: 20210108, end: 20210108
  2. WARFARIN [Concomitant]
     Active Substance: WARFARIN
     Dosage: 2.5 MG, DAILY ON ON ALL OTHER DAYS
     Route: 065
  3. WARFARIN [Concomitant]
     Active Substance: WARFARIN
     Dosage: 2.5 MG, ON MONDAY/FRIDAY
     Route: 065

REACTIONS (7)
  - Lung disorder [Unknown]
  - International normalised ratio increased [Recovered/Resolved]
  - Death [Fatal]
  - Pulseless electrical activity [Unknown]
  - Subarachnoid haemorrhage [Unknown]
  - COVID-19 pneumonia [Unknown]
  - Intraventricular haemorrhage [Unknown]

NARRATIVE: CASE EVENT DATE: 20210109
